FAERS Safety Report 8666175 (Version 2)
Quarter: 2013Q1

REPORT INFORMATION
  Report Type: Spontaneous
  Country: JP (occurrence: None)
  Receive Date: 20120629
  Receipt Date: 20121211
  Transmission Date: 20140127
  Serious: Yes (Other)
  Sender: FDA-Public Use
  Company Number: 2012S1000722

PATIENT
  Age: 76 Year
  Sex: Female

DRUGS (1)
  1. LIVALO [Suspect]
     Dosage: 1 MG;1X;PO
     Route: 048
     Dates: start: 201010, end: 201110

REACTIONS (1)
  - BLOOD CREATINE PHOSPHOKINASE INCREASED [None]
